FAERS Safety Report 19235950 (Version 1)
Quarter: 2021Q2

REPORT INFORMATION
  Report Type: Spontaneous
  Country: US (occurrence: US)
  Receive Date: 20210510
  Receipt Date: 20210510
  Transmission Date: 20210717
  Serious: No
  Sender: FDA-Public Use
  Company Number: US-SA-2021SA151793

PATIENT
  Age: 52 Year
  Sex: Female

DRUGS (4)
  1. DUPIXENT [Suspect]
     Active Substance: DUPILUMAB
     Indication: RASH
  2. DUPIXENT [Suspect]
     Active Substance: DUPILUMAB
     Indication: DYSHIDROTIC ECZEMA
  3. DUPIXENT [Suspect]
     Active Substance: DUPILUMAB
     Indication: DERMATITIS ATOPIC
     Dosage: 300 MG, QOW
     Route: 058
     Dates: start: 202103
  4. DUPIXENT [Suspect]
     Active Substance: DUPILUMAB
     Indication: NEURODERMATITIS

REACTIONS (3)
  - Hordeolum [Unknown]
  - Product use in unapproved indication [Unknown]
  - Skin discharge [Unknown]

NARRATIVE: CASE EVENT DATE: 2021
